FAERS Safety Report 12068553 (Version 1)
Quarter: 2016Q1

REPORT INFORMATION
  Report Type: Spontaneous
  Country: JP (occurrence: JP)
  Receive Date: 20160211
  Receipt Date: 20160211
  Transmission Date: 20160526
  Serious: Yes (Hospitalization, Other)
  Sender: FDA-Public Use
  Company Number: JP-BRISTOL-MYERS SQUIBB COMPANY-11045143

PATIENT
  Age: 31 Year
  Sex: Female
  Weight: 60 kg

DRUGS (1)
  1. MAXIPIME [Suspect]
     Active Substance: CEFEPIME HYDROCHLORIDE
     Indication: PREMATURE RUPTURE OF MEMBRANES
     Dosage: 1 G, UNK
     Route: 042
     Dates: start: 20011022, end: 20011022

REACTIONS (4)
  - Anaphylactic shock [Recovered/Resolved]
  - Live birth [Unknown]
  - Caesarean section [Recovered/Resolved]
  - Pregnancy [Recovered/Resolved]

NARRATIVE: CASE EVENT DATE: 20011022
